FAERS Safety Report 22147176 (Version 1)
Quarter: 2023Q1

REPORT INFORMATION
  Report Type: Spontaneous
  Country: US (occurrence: US)
  Receive Date: 20230328
  Receipt Date: 20230328
  Transmission Date: 20230418
  Serious: Yes (Other)
  Sender: FDA-Public Use
  Company Number: US-BEH-2023156718

PATIENT
  Sex: Male

DRUGS (6)
  1. IDELVION [Suspect]
     Active Substance: COAGULATION FACTOR IX RECOMBINANT HUMAN
     Indication: Factor IX deficiency
     Dosage: 1250 INTERNATIONAL UNIT, QW
     Route: 042
     Dates: start: 202205
  2. IDELVION [Suspect]
     Active Substance: COAGULATION FACTOR IX RECOMBINANT HUMAN
     Indication: Factor IX deficiency
     Dosage: 1250 INTERNATIONAL UNIT, QW
     Route: 042
     Dates: start: 202205
  3. IDELVION [Suspect]
     Active Substance: COAGULATION FACTOR IX RECOMBINANT HUMAN
     Indication: Prophylaxis
     Dosage: 1250 INTERNATIONAL UNIT, QD (FOR SUSPECTED JOINT OR MUSCLE BLEEDING)
     Route: 042
     Dates: start: 202205
  4. IDELVION [Suspect]
     Active Substance: COAGULATION FACTOR IX RECOMBINANT HUMAN
     Indication: Prophylaxis
     Dosage: 1250 INTERNATIONAL UNIT, QD (FOR SUSPECTED JOINT OR MUSCLE BLEEDING)
     Route: 042
     Dates: start: 202205
  5. IDELVION [Suspect]
     Active Substance: COAGULATION FACTOR IX RECOMBINANT HUMAN
     Dosage: 2500 INTERNATIONAL UNIT, PRN (FOR SUSPECTED HEAD, NECK OR ABDOMINAL BLEEDING)
     Route: 042
     Dates: start: 202205
  6. IDELVION [Suspect]
     Active Substance: COAGULATION FACTOR IX RECOMBINANT HUMAN
     Dosage: 2500 INTERNATIONAL UNIT, PRN (FOR SUSPECTED HEAD, NECK OR ABDOMINAL BLEEDING)
     Route: 042
     Dates: start: 202205

REACTIONS (2)
  - Mouth haemorrhage [Unknown]
  - Lip haemorrhage [Unknown]
